FAERS Safety Report 13839398 (Version 2)
Quarter: 2017Q3

REPORT INFORMATION
  Report Type: Spontaneous
  Country: US (occurrence: US)
  Receive Date: 20170807
  Receipt Date: 20170831
  Transmission Date: 20171127
  Serious: No
  Sender: FDA-Public Use
  Company Number: US-BEH-2017082632

PATIENT
  Age: 20 Year
  Sex: Female

DRUGS (1)
  1. HIZENTRA [Suspect]
     Active Substance: HUMAN IMMUNOGLOBULIN G
     Indication: IMMUNODEFICIENCY
     Dosage: 5 G (25 ML), QW
     Route: 058
     Dates: start: 20170420

REACTIONS (3)
  - Peripheral swelling [Unknown]
  - Onychomadesis [Unknown]
  - Nail infection [Unknown]

NARRATIVE: CASE EVENT DATE: 20170725
